FAERS Safety Report 5212592-3 (Version None)
Quarter: 2007Q1

REPORT INFORMATION
  Report Type: 
  Country: None (occurrence: None)
  Receive Date: 20070118
  Receipt Date: 20070108
  Transmission Date: 20070707
  Serious: Yes (Hospitalization, Other)
  Sender: FDA-Public Use
  Company Number: US-PFIZER INC-2007001921

PATIENT
  Sex: Female
  Weight: 68.5 kg

DRUGS (6)
  1. BEXTRA [Suspect]
     Indication: OSTEOARTHRITIS
     Route: 048
     Dates: start: 20010101, end: 20030501
  2. BEXTRA [Suspect]
     Indication: RHEUMATOID ARTHRITIS
  3. ADVIL [Concomitant]
  4. ALEVE [Concomitant]
  5. ASPIRIN [Concomitant]
  6. CELEBREX [Concomitant]

REACTIONS (2)
  - CEREBROVASCULAR ACCIDENT [None]
  - MYOCARDIAL INFARCTION [None]
